FAERS Safety Report 11428115 (Version 1)
Quarter: 2015Q3

REPORT INFORMATION
  Report Type: Spontaneous
  Country: US (occurrence: US)
  Receive Date: 20150828
  Receipt Date: 20150828
  Transmission Date: 20151125
  Serious: No
  Sender: FDA-Public Use
  Company Number: US-ROCHE-1263592

PATIENT
  Sex: Female

DRUGS (3)
  1. RIBAVIRIN. [Suspect]
     Active Substance: RIBAVIRIN
     Indication: CHRONIC HEPATITIS C
     Route: 065
     Dates: start: 20130807
  2. OXYCODONE [Concomitant]
     Active Substance: OXYCODONE
  3. PEGASYS [Suspect]
     Active Substance: PEGINTERFERON ALFA-2A
     Indication: CHRONIC HEPATITIS C
     Route: 065
     Dates: start: 20130807

REACTIONS (5)
  - Pain [Recovered/Resolved]
  - Depression [Unknown]
  - Chills [Recovered/Resolved]
  - Body temperature increased [Recovered/Resolved]
  - Blood test abnormal [Unknown]
